FAERS Safety Report 14628337 (Version 2)
Quarter: 2018Q2

REPORT INFORMATION
  Report Type: Spontaneous
  Country: CA (occurrence: CA)
  Receive Date: 20180312
  Receipt Date: 20180504
  Transmission Date: 20180711
  Serious: No
  Sender: FDA-Public Use
  Company Number: CA-JUBILANT PHARMA LTD-2018CA000273

PATIENT
  Age: 40 Year
  Sex: Male

DRUGS (1)
  1. MEDRONIC ACID [Suspect]
     Active Substance: MEDRONIC ACID
     Indication: BONE SCAN
     Dosage: 1000 MBQ, SINGLE DOSE
     Route: 042
     Dates: end: 20170829

REACTIONS (4)
  - Vomiting [Unknown]
  - Hyperhidrosis [Unknown]
  - Nonspecific reaction [Unknown]
  - Nausea [Unknown]

NARRATIVE: CASE EVENT DATE: 20170829
